FAERS Safety Report 25712054 (Version 3)
Quarter: 2025Q4

REPORT INFORMATION
  Report Type: Spontaneous
  Country: EU (occurrence: EU)
  Receive Date: 20250821
  Receipt Date: 20251009
  Transmission Date: 20260117
  Serious: No
  Sender: PFIZER
  Company Number: EU-PFIZER INC-PV202500099820

PATIENT
  Age: 8 Year
  Sex: Male
  Weight: 22 kg

DRUGS (4)
  1. GENOTROPIN [Suspect]
     Active Substance: SOMATROPIN
     Indication: Growth hormone deficiency
     Dosage: 0.8 MG, 1 TIME FOR 4 DAYS AND 0.9 MG, 1 TIME FOR 2 DAYS AND 1 DAY OFF
     Route: 058
     Dates: start: 202303
  2. GENOTROPIN [Suspect]
     Active Substance: SOMATROPIN
     Dosage: 0.8 MG, 1 TIME FOR 4 DAYS AND 0.9 MG, 1 TIME FOR 2 DAYS AND 1 DAY OFF
     Route: 058
     Dates: start: 202303
  3. LEVOTHYROXINE [Concomitant]
     Active Substance: LEVOTHYROXINE
     Indication: Hypothyroidism
     Dosage: 25 UG, 1X/DAY FOR 6 DAYS
  4. LEVOTHYROXINE [Concomitant]
     Active Substance: LEVOTHYROXINE
     Dosage: 12 UG, 1X/DAY FOR 1 DAY

REACTIONS (1)
  - Device physical property issue [Unknown]

NARRATIVE: CASE EVENT DATE: 20250101
